FAERS Safety Report 11033541 (Version 2)
Quarter: 2015Q2

REPORT INFORMATION
  Report Type: Spontaneous
  Country: CN (occurrence: CN)
  Receive Date: 20150415
  Receipt Date: 20150417
  Transmission Date: 20150821
  Serious: Yes (Death)
  Sender: FDA-Public Use
  Company Number: CN-BAYER-2015-128588

PATIENT
  Age: 62 Year
  Sex: Female

DRUGS (1)
  1. ULTRAVIST [Suspect]
     Active Substance: IOPROMIDE
     Indication: COMPUTERISED TOMOGRAM
     Dosage: 80-90ML, ONCE
     Dates: start: 20150402, end: 20150402

REACTIONS (4)
  - Respiratory rate decreased [None]
  - Palpitations [None]
  - Laryngeal oedema [Fatal]
  - Shock [Fatal]

NARRATIVE: CASE EVENT DATE: 20150402
